FAERS Safety Report 14315662 (Version 5)
Quarter: 2018Q1

REPORT INFORMATION
  Report Type: Spontaneous
  Country: IT (occurrence: IT)
  Receive Date: 20171221
  Receipt Date: 20180321
  Transmission Date: 20180509
  Serious: Yes (Other)
  Sender: FDA-Public Use
  Company Number: IT-BAUSCH-BL-2017-034376

PATIENT
  Age: 71 Year
  Sex: Male

DRUGS (3)
  1. VELCADE [Suspect]
     Active Substance: BORTEZOMIB
     Indication: PLASMA CELL MYELOMA
     Dosage: 1 CYCLICAL, LYOPHILIZED POWDER
     Route: 065
     Dates: start: 20101019, end: 20101130
  2. BENDAMUSTINE HYDROCHLORIDE. [Suspect]
     Active Substance: BENDAMUSTINE HYDROCHLORIDE
     Indication: PLASMA CELL MYELOMA
     Dosage: 1 CYCLICAL, POWDER (EXCEPT DUSTING POWDER)
     Route: 042
  3. DEXAMETHASONE. [Suspect]
     Active Substance: DEXAMETHASONE
     Indication: PLASMA CELL MYELOMA
     Dosage: 1 CYCLICAL, FORMULATION UNKNOWN
     Route: 065
     Dates: start: 20101019, end: 20160421

REACTIONS (1)
  - Plasma cell myeloma [Unknown]
